FAERS Safety Report 6188487-8 (Version None)
Quarter: 2009Q2

REPORT INFORMATION
  Report Type: 
  Country: None (occurrence: None)
  Receive Date: 20090513
  Receipt Date: 20090429
  Transmission Date: 20091009
  Serious: Yes (Other)
  Sender: FDA-Public Use
  Company Number: US-PFIZER INC-2008056982

PATIENT
  Sex: Female
  Weight: 66 kg

DRUGS (13)
  1. PROVERA [Suspect]
     Indication: HORMONE REPLACEMENT THERAPY
     Dosage: 2.5 MG, UNK
     Route: 048
     Dates: start: 19930301, end: 19960101
  2. PROVERA [Suspect]
     Indication: MENOPAUSAL SYMPTOMS
  3. MEDROXYPROGESTERONE AND MEDROXYPROGESTERONE ACETATE [Suspect]
     Indication: HORMONE REPLACEMENT THERAPY
     Route: 048
     Dates: start: 19940101
  4. PREMARIN [Suspect]
     Indication: HORMONE REPLACEMENT THERAPY
     Dosage: 0.625 MG, UNK
     Dates: start: 19930301, end: 19931201
  5. PREMARIN [Suspect]
     Indication: MENOPAUSAL SYMPTOMS
     Dosage: 0.9 MG, UNK
     Dates: start: 19931201, end: 19940405
  6. PREMARIN [Suspect]
     Dosage: 0.625 MG, UNK
     Dates: start: 19940405, end: 19960101
  7. PREMPRO [Suspect]
     Indication: HORMONE REPLACEMENT THERAPY
     Dosage: 0.625/2.5 MG
     Dates: start: 19961201, end: 20020101
  8. PREMPRO [Suspect]
     Indication: MENOPAUSAL SYMPTOMS
  9. VITAMIN E [Concomitant]
     Indication: VITAMIN SUPPLEMENTATION
     Dosage: UNK
     Dates: start: 20011211, end: 20070101
  10. MULTI-VITAMINS [Concomitant]
     Indication: VITAMIN SUPPLEMENTATION
     Dosage: UNK
     Dates: start: 20011211
  11. ACETYLSALICYLIC ACID [Concomitant]
     Dosage: UNK
     Dates: start: 20011211
  12. PROZAC [Concomitant]
     Indication: DEPRESSION
     Dosage: UNK
     Dates: start: 20000310
  13. CALCIUM WITH VITAMIN D [Concomitant]
     Indication: OSTEOPOROSIS
     Dosage: UNK
     Dates: start: 20011211

REACTIONS (4)
  - ANXIETY [None]
  - BREAST CANCER FEMALE [None]
  - DEPRESSION [None]
  - INSOMNIA [None]
